FAERS Safety Report 9418411 (Version 2)
Quarter: 2013Q3

REPORT INFORMATION
  Report Type: Report from Study
  Country: US (occurrence: US)
  Receive Date: 20130725
  Receipt Date: 20130809
  Transmission Date: 20140515
  Serious: Yes (Hospitalization, Other)
  Sender: FDA-Public Use
  Company Number: US-BIOGENIDEC-2013BI063995

PATIENT
  Age: 60 Year
  Sex: Female
  Weight: 64 kg

DRUGS (20)
  1. TECFIDERA [Suspect]
     Indication: MULTIPLE SCLEROSIS
     Route: 048
     Dates: start: 20130530, end: 20130605
  2. TECFIDERA [Suspect]
     Indication: MULTIPLE SCLEROSIS
     Route: 048
     Dates: start: 20130606
  3. ASPIRIN [Concomitant]
     Indication: ANTICOAGULANT THERAPY
     Route: 048
     Dates: start: 20130614
  4. LEVOTHYROXINE [Concomitant]
     Indication: HYPOTHYROIDISM
     Route: 048
     Dates: start: 1985
  5. PRIMIDONE [Concomitant]
     Indication: TREMOR
     Route: 048
     Dates: start: 201210
  6. METOPROLOL [Concomitant]
     Indication: HEART RATE INCREASED
     Route: 048
     Dates: start: 201209, end: 20130710
  7. GABAPENTIN [Concomitant]
     Indication: NECK PAIN
     Route: 048
     Dates: start: 2010
  8. BACLOFEN [Concomitant]
     Indication: MUSCLE SPASMS
     Route: 048
     Dates: start: 201210
  9. VENLAFAXINE XR [Concomitant]
     Indication: DEPRESSION
     Route: 048
     Dates: start: 1981
  10. VITAMIN B12 [Concomitant]
     Indication: VITAMIN B12 DEFICIENCY
     Route: 030
     Dates: start: 1998
  11. KLONOPIN [Concomitant]
     Indication: BIPOLAR DISORDER
     Route: 048
     Dates: start: 20130703
  12. BENADRYL [Concomitant]
     Indication: ANTIALLERGIC THERAPY
     Route: 048
     Dates: start: 20130610
  13. VESICARE [Concomitant]
     Indication: HYPERTONIC BLADDER
     Route: 048
     Dates: start: 201206
  14. PREMPRO [Concomitant]
     Indication: HORMONE REPLACEMENT THERAPY
     Route: 048
     Dates: start: 201302
  15. PROAIR HFA [Concomitant]
     Indication: ASTHMA
     Route: 055
     Dates: start: 200803
  16. BUPROPRION [Concomitant]
     Indication: EX-TOBACCO USER
     Route: 048
     Dates: start: 20130626
  17. HYDROCODONE 25/325 [Concomitant]
     Indication: NECK PAIN
     Route: 048
     Dates: start: 2010
  18. OMEPRAZOLE [Concomitant]
     Indication: PROPHYLAXIS
     Route: 048
     Dates: start: 20130626
  19. SPIRIVA HANDIHALER [Concomitant]
     Indication: ASTHMA
     Route: 055
     Dates: start: 200803
  20. GEODON [Concomitant]
     Indication: BIPOLAR DISORDER
     Route: 048
     Dates: start: 201207, end: 20130703

REACTIONS (1)
  - Atrial fibrillation [Recovered/Resolved]
